FAERS Safety Report 18287137 (Version 4)
Quarter: 2021Q2

REPORT INFORMATION
  Report Type: Report from Study
  Country: US (occurrence: US)
  Receive Date: 20200921
  Receipt Date: 20210405
  Transmission Date: 20210717
  Serious: Yes (Other)
  Sender: FDA-Public Use
  Company Number: US-INSMED, INC.-US-INS-20-01631

PATIENT
  Age: 72 Year
  Sex: Male

DRUGS (2)
  1. ARIKAYCE [Suspect]
     Active Substance: AMIKACIN
     Indication: MYCOBACTERIAL INFECTION
     Dosage: 590 MILLIGRAM
     Route: 055
     Dates: start: 202007, end: 2020
  2. ARIKAYCE [Suspect]
     Active Substance: AMIKACIN
     Dosage: 590 MILLIGRAM
     Route: 055
     Dates: start: 2020, end: 20201221

REACTIONS (19)
  - Decreased appetite [Recovering/Resolving]
  - Rash [Unknown]
  - Malaise [Recovering/Resolving]
  - Blood glucose decreased [Recovering/Resolving]
  - Unresponsive to stimuli [Recovering/Resolving]
  - Skin irritation [Unknown]
  - Post-tussive vomiting [Unknown]
  - Weight decreased [Recovering/Resolving]
  - Bronchospasm [Unknown]
  - Therapy interrupted [Unknown]
  - Asthenia [Not Recovered/Not Resolved]
  - Vomiting [Not Recovered/Not Resolved]
  - Treatment noncompliance [Unknown]
  - Unevaluable event [Recovering/Resolving]
  - Gastric disorder [Unknown]
  - Cough [Unknown]
  - Diarrhoea [Recovered/Resolved]
  - Headache [Not Recovered/Not Resolved]
  - Haemoptysis [Unknown]

NARRATIVE: CASE EVENT DATE: 2020
